FAERS Safety Report 5925393-5 (Version None)
Quarter: 2008Q4

REPORT INFORMATION
  Report Type: 
  Country: None (occurrence: None)
  Receive Date: 20081021
  Receipt Date: 20081013
  Transmission Date: 20090506
  Serious: Yes (Hospitalization)
  Sender: FDA-Public Use
  Company Number: FR-ELI_LILLY_AND_COMPANY-FR200809001538

PATIENT
  Age: 33 Year
  Sex: Female
  Weight: 40 kg

DRUGS (5)
  1. CYMBALTA [Suspect]
     Indication: DEPRESSION
     Dosage: 30 MG, DAILY (1/D)
     Route: 048
     Dates: start: 20080701, end: 20080830
  2. CYMBALTA [Suspect]
     Dosage: 900 MG, OTHER (30 X 30MG TABLETS), SINGLE DOSE
     Route: 048
     Dates: start: 20080831, end: 20080831
  3. CYMBALTA [Suspect]
     Dosage: 30 MG, DAILY (1/D)
     Route: 048
     Dates: start: 20080901
  4. ALPRAZOLAM [Concomitant]
     Dosage: 0.25 MG, DAILY (1/D)
     Route: 048
  5. RIVOTRIL [Concomitant]
     Dosage: 5 D/F, DAILY (1/D)
     Route: 048

REACTIONS (5)
  - AGGRESSION [None]
  - COMA [None]
  - FATIGUE [None]
  - INTENTIONAL OVERDOSE [None]
  - SUICIDE ATTEMPT [None]
